FAERS Safety Report 9026410 (Version 1)
Quarter: 2013Q1

REPORT INFORMATION
  Report Type: Spontaneous
  Country: CH (occurrence: CH)
  Receive Date: 20130123
  Receipt Date: 20130123
  Transmission Date: 20140127
  Serious: Yes (Hospitalization)
  Sender: FDA-Public Use
  Company Number: CH-009507513-0901CHE00009

PATIENT
  Age: 75 Year
  Sex: Female

DRUGS (8)
  1. FOSAVANCE [Suspect]
     Indication: OSTEOGENESIS IMPERFECTA
     Dosage: 70MG/2800IU, QW
     Route: 048
     Dates: start: 20081201
  2. FOSAMAX [Suspect]
     Indication: MULTIPLE FRACTURES
     Dosage: 70 MG, QW
     Route: 048
     Dates: start: 2004, end: 200812
  3. FOSAMAX [Suspect]
     Indication: OSTEOPOROSIS
  4. FOSAMAX [Suspect]
     Indication: OSTEOGENESIS IMPERFECTA
  5. CALCIMAGON D3 [Concomitant]
     Indication: OSTEOGENESIS IMPERFECTA
     Dosage: 1 DF, BID
     Route: 048
  6. CALCIMAGON D3 [Concomitant]
     Indication: MULTIPLE FRACTURES
  7. CALCIMAGON D3 [Concomitant]
     Indication: OSTEOPOROSIS
  8. HORMONES (UNSPECIFIED) [Concomitant]

REACTIONS (1)
  - Pathological fracture [Recovering/Resolving]
